FAERS Safety Report 13189574 (Version 1)
Quarter: 2017Q1

REPORT INFORMATION
  Report Type: Spontaneous
  Country: US (occurrence: US)
  Receive Date: 20170206
  Receipt Date: 20170206
  Transmission Date: 20170428
  Serious: No
  Sender: FDA-Public Use
  Company Number: US-DSJP-DSU-2016-111422

PATIENT
  Age: 65 Year
  Sex: Female
  Weight: 58.96 kg

DRUGS (2)
  1. PILOCARPINE. [Suspect]
     Active Substance: PILOCARPINE
     Indication: SJOGREN^S SYNDROME
     Dosage: 7.5 MG, QID
     Route: 048
     Dates: start: 201603
  2. EVOXAC [Suspect]
     Active Substance: CEVIMELINE HYDROCHLORIDE
     Indication: SJOGREN^S SYNDROME
     Dosage: 30 MG, TID
     Route: 048
     Dates: start: 2006, end: 201603

REACTIONS (1)
  - Abdominal pain upper [Unknown]

NARRATIVE: CASE EVENT DATE: 201603
